FAERS Safety Report 6351526 (Version 2)
Quarter: 2013Q1

REPORT INFORMATION
  Report Type: Spontaneous
  Country: DE (occurrence: US)
  Receive Date: 20070706
  Receipt Date: 20130204
  Transmission Date: 20140127
  Serious: Yes (Other)
  Sender: FDA-Public Use
  Company Number: GB-PFIZER INC-2007053221

PATIENT
  Age: 31 Year
  Sex: Female

DRUGS (3)
  1. SERTRALINE HCL [Suspect]
     Indication: PANIC DISORDER
  2. ALPRAZOLAM [Suspect]
     Indication: PANIC DISORDER
  3. PAROXETINE [Suspect]
     Indication: PANIC DISORDER

REACTIONS (6)
  - Akathisia [Unknown]
  - Homicide [Unknown]
  - Suicidal ideation [Unknown]
  - Alcohol use [Unknown]
  - Obsessive-compulsive personality disorder [Unknown]
  - Depression [Unknown]
